FAERS Safety Report 18391000 (Version 1)
Quarter: 2020Q4

REPORT INFORMATION
  Report Type: Report from Study
  Country: None (occurrence: US)
  Receive Date: 20201015
  Receipt Date: 20201015
  Transmission Date: 20210114
  Serious: Yes (Other)
  Sender: FDA-Public Use
  Company Number: US-ABBVIE-20K-163-3604667-00

PATIENT
  Age: 7 Year
  Sex: Female

DRUGS (4)
  1. HUMIRA [Suspect]
     Active Substance: ADALIMUMAB
     Route: 058
     Dates: end: 201805
  2. METHOTREXATE. [Concomitant]
     Active Substance: METHOTREXATE
     Indication: PRODUCT USED FOR UNKNOWN INDICATION
  3. HUMIRA [Suspect]
     Active Substance: ADALIMUMAB
     Route: 058
     Dates: start: 202009
  4. HUMIRA [Suspect]
     Active Substance: ADALIMUMAB
     Indication: UVEITIS
     Route: 058
     Dates: start: 201802

REACTIONS (15)
  - Injection site discolouration [Recovered/Resolved]
  - Uveitis [Recovered/Resolved]
  - Cystoid macular oedema [Recovered/Resolved]
  - Pruritus [Recovered/Resolved]
  - Blindness [Recovering/Resolving]
  - Insomnia [Recovered/Resolved]
  - Urticaria [Recovered/Resolved]
  - Corneal scar [Not Recovered/Not Resolved]
  - Headache [Recovered/Resolved]
  - Injection site reaction [Recovered/Resolved]
  - Pyrexia [Recovered/Resolved]
  - Liquid product physical issue [Unknown]
  - Injury corneal [Not Recovered/Not Resolved]
  - Burning sensation [Recovered/Resolved]
  - Device issue [Unknown]

NARRATIVE: CASE EVENT DATE: 201805
